FAERS Safety Report 4314788-1 (Version None)
Quarter: 2004Q1

REPORT INFORMATION
  Report Type: 
  Country: None (occurrence: None)
  Receive Date: 20040308
  Receipt Date: 20040301
  Transmission Date: 20041129
  Serious: No
  Sender: FDA-Public Use
  Company Number: 2004GB00525

PATIENT
  Age: 44 Year
  Weight: 75 kg

DRUGS (2)
  1. QUETIAPINE [Suspect]
  2. QUETIAPINE [Suspect]
     Dosage: 200 MG QD PO
     Route: 048
     Dates: start: 20040126, end: 20040128

REACTIONS (4)
  - DERMATITIS EXFOLIATIVE [None]
  - DYSPNOEA [None]
  - FLUSHING [None]
  - RASH [None]
